FAERS Safety Report 14225630 (Version 2)
Quarter: 2017Q4

REPORT INFORMATION
  Report Type: Spontaneous
  Country: DE (occurrence: DE)
  Receive Date: 20171127
  Receipt Date: 20171214
  Transmission Date: 20180321
  Serious: Yes (Death, Hospitalization, Other)
  Sender: FDA-Public Use
  Company Number: DE-AMGEN-DEUSP2017174534

PATIENT
  Age: 34 Year
  Sex: Female
  Weight: 82 kg

DRUGS (16)
  1. LEMTRADA [Suspect]
     Active Substance: ALEMTUZUMAB
     Dosage: UNK UNK, Q12MO
     Route: 042
     Dates: start: 201603
  2. PARACETAMOL [Concomitant]
     Active Substance: ACETAMINOPHEN
     Dosage: 2X1G
  3. NPLATE [Suspect]
     Active Substance: ROMIPLOSTIM
     Dosage: 500 MUG, UNK
     Route: 058
     Dates: start: 20161107, end: 20161110
  4. IMMUNOGLOBULIN (IMMUNOGLOBULIN HUMAN NORMAL) [Concomitant]
     Active Substance: HUMAN IMMUNOGLOBULIN G
     Dosage: 80 G, QD
     Dates: start: 20161128
  5. PANTOPRAZOLE [Concomitant]
     Active Substance: PANTOPRAZOLE
  6. DEXAMETHASONE. [Concomitant]
     Active Substance: DEXAMETHASONE
     Indication: PLATELET COUNT ABNORMAL
     Dosage: 40 MG, QD
     Dates: start: 201609
  7. TOPIRAMAT [Concomitant]
     Active Substance: TOPIRAMATE
  8. PREDNISOLONE. [Concomitant]
     Active Substance: PREDNISOLONE
     Indication: IMMUNE THROMBOCYTOPENIC PURPURA
  9. RITUXIMAB. [Concomitant]
     Active Substance: RITUXIMAB
     Indication: THROMBOCYTOPENIA
     Dosage: 375 MG/M2, UNK
     Dates: start: 20161126
  10. LEMTRADA [Suspect]
     Active Substance: ALEMTUZUMAB
     Indication: MULTIPLE SCLEROSIS
     Dosage: UNK UNK, Q12MO
     Route: 042
     Dates: start: 201502, end: 201602
  11. MOCLOBEMIDE [Concomitant]
     Active Substance: MOCLOBEMIDE
  12. IMMUNOGLOBULIN (IMMUNOGLOBULIN HUMAN NORMAL) [Concomitant]
     Active Substance: HUMAN IMMUNOGLOBULIN G
     Dosage: 30 G, QD
     Dates: start: 20161111, end: 20161114
  13. ELTROMBOPAG [Concomitant]
     Active Substance: ELTROMBOPAG
     Dosage: 50 MG, UNK
     Dates: start: 20161119
  14. NPLATE [Suspect]
     Active Substance: ROMIPLOSTIM
     Indication: IMMUNE THROMBOCYTOPENIC PURPURA
     Dosage: 250 MUG, UNK
     Route: 058
     Dates: start: 201609
  15. NPLATE [Suspect]
     Active Substance: ROMIPLOSTIM
     Dosage: 750 MUG, QWK
     Route: 058
     Dates: start: 20161111, end: 20161114
  16. OCTAGAM IMMUNE GLOBULIN (HUMAN) [Concomitant]
     Active Substance: HUMAN IMMUNOGLOBULIN G
     Indication: THROMBOCYTOPENIA
     Dosage: UNK

REACTIONS (14)
  - Subarachnoid haemorrhage [Unknown]
  - Mouth ulceration [Unknown]
  - Asthenia [Unknown]
  - Petechiae [Unknown]
  - Cerebral haemorrhage [Fatal]
  - Drug ineffective [Unknown]
  - Melaena [Unknown]
  - Nausea [Unknown]
  - Epistaxis [Unknown]
  - Haematuria [Unknown]
  - Bone pain [Unknown]
  - Migraine [Unknown]
  - Mucosal haemorrhage [Unknown]
  - Platelet count decreased [Not Recovered/Not Resolved]

NARRATIVE: CASE EVENT DATE: 2016
